FAERS Safety Report 9145876 (Version 1)
Quarter: 2013Q1

REPORT INFORMATION
  Report Type: Spontaneous
  Country: US (occurrence: US)
  Receive Date: 20130307
  Receipt Date: 20130307
  Transmission Date: 20140127
  Serious: Yes (Hospitalization)
  Sender: FDA-Public Use
  Company Number: US-COVIDIEN/TYCO HEALTHCARE/MALLINCKRODT-T201300980

PATIENT
  Age: 66 None
  Sex: Female
  Weight: 76.4 kg

DRUGS (24)
  1. METHADONE [Suspect]
     Dosage: 10 MG, BID
     Dates: end: 20121214
  2. METHADONE [Suspect]
     Dosage: 10 MG QAM
     Dates: start: 20121215, end: 20121216
  3. METHADONE [Suspect]
     Dosage: 5 MG, QHS
     Dates: start: 20121215, end: 20121216
  4. JAKAFI [Suspect]
     Indication: MYELOPROLIFERATIVE DISORDER
     Dosage: 20 MG, QD
     Route: 048
     Dates: start: 20120222, end: 2012
  5. JAKAFI [Suspect]
     Dosage: 20 MG, BID
     Route: 048
  6. VICODIN [Concomitant]
     Dosage: UNK
  7. TRAZODONE [Concomitant]
     Dosage: UNK
  8. XANAX [Concomitant]
     Dosage: UNK
  9. DOXEPIN [Concomitant]
     Dosage: UNK
  10. CARBIDOPA AND LEVODOPA [Concomitant]
     Dosage: UNK
  11. BELLADONNA EXTRACT [Concomitant]
     Dosage: UNK
  12. PHENOBARBITAL [Concomitant]
     Dosage: UNK
  13. PAXIL [Concomitant]
     Dosage: UNK
  14. HYDROCHLOROTHIAZIDE [Concomitant]
     Dosage: UNK
  15. LASIX                              /00032601/ [Concomitant]
     Dosage: UNK
  16. METOPROLOL [Concomitant]
     Dosage: UNK
  17. CARVEDILOL [Concomitant]
     Dosage: UNK
  18. LIPITOR [Concomitant]
     Dosage: UNK
  19. PRILOSEC                           /00661201/ [Concomitant]
     Dosage: UNK
  20. ASPIRIN [Concomitant]
     Dosage: UNK
  21. QUINAPRIL [Concomitant]
     Dosage: UNK
  22. TRAMADOL [Concomitant]
     Dosage: UNK
  23. ROCEPHIN [Concomitant]
     Dosage: UNK
  24. BLOOD THINNER [Concomitant]
     Dosage: UNK

REACTIONS (7)
  - Acute myocardial infarction [Recovering/Resolving]
  - Hypoxia [Recovering/Resolving]
  - Somnolence [Recovering/Resolving]
  - Arthralgia [Recovering/Resolving]
  - Fall [Recovering/Resolving]
  - Dizziness [Recovering/Resolving]
  - Fatigue [Recovering/Resolving]
